FAERS Safety Report 16219100 (Version 3)
Quarter: 2019Q3

REPORT INFORMATION
  Report Type: Spontaneous
  Country: US (occurrence: US)
  Receive Date: 20190419
  Receipt Date: 20190719
  Transmission Date: 20191004
  Serious: Yes (Death, Other)
  Sender: FDA-Public Use
  Company Number: US-ASTRAZENECA-2019SE11355

PATIENT
  Age: 21821 Day
  Sex: Male
  Weight: 72.6 kg

DRUGS (25)
  1. NEXIUM [Suspect]
     Active Substance: ESOMEPRAZOLE MAGNESIUM
     Indication: GASTRIC DISORDER
     Route: 048
     Dates: start: 1976
  2. LEXAPRO [Concomitant]
     Active Substance: ESCITALOPRAM OXALATE
  3. NEXIUM 24HR [Suspect]
     Active Substance: ESOMEPRAZOLE MAGNESIUM
     Route: 048
  4. PRILOSEC [Suspect]
     Active Substance: OMEPRAZOLE MAGNESIUM
     Indication: ULCER
     Dosage: PRIOR TO 1979
     Route: 048
  5. COUMADIN [Concomitant]
     Active Substance: WARFARIN SODIUM
  6. LOMOTIL [Concomitant]
     Active Substance: ATROPINE SULFATE\DIPHENOXYLATE HYDROCHLORIDE
     Indication: SEIZURE
     Dates: start: 201504
  7. CENTRUM [Concomitant]
     Active Substance: VITAMINS
     Indication: SUPPLEMENTATION THERAPY
     Dates: start: 201504
  8. CARBONATE AND MAGNESIUM HYDROXIDE OTC [Concomitant]
  9. PREVACID [Suspect]
     Active Substance: LANSOPRAZOLE
     Route: 065
  10. PRILOSEC OTC [Suspect]
     Active Substance: OMEPRAZOLE MAGNESIUM
     Route: 048
  11. PROTONIX [Suspect]
     Active Substance: PANTOPRAZOLE SODIUM
     Route: 065
     Dates: start: 1993
  12. PERCOCET [Concomitant]
     Active Substance: ACETAMINOPHEN\OXYCODONE HYDROCHLORIDE
  13. CIPRO [Concomitant]
     Active Substance: CIPROFLOXACIN HYDROCHLORIDE
     Indication: URINARY TRACT INFECTION
     Dates: start: 201406
  14. NORCO [Concomitant]
     Active Substance: ACETAMINOPHEN\HYDROCODONE BITARTRATE
     Indication: PAIN
     Dates: start: 201504
  15. TUMS [Concomitant]
     Active Substance: CALCIUM CARBONATE
  16. PEPTO-BISMOL [Concomitant]
     Active Substance: BISMUTH SUBSALICYLATE
  17. VITAMIN B12 [Concomitant]
     Active Substance: CYANOCOBALAMIN
     Indication: FATIGUE
     Dates: start: 201504
  18. TYLENOL [Concomitant]
     Active Substance: ACETAMINOPHEN
     Indication: PAIN
     Dates: start: 201504
  19. OMEPRAZOLE SODIUM [Suspect]
     Active Substance: OMEPRAZOLE SODIUM
     Indication: CROHN^S DISEASE
     Dosage: GENERIC (OMEPRAZOLE + SODIUM)
     Route: 065
     Dates: start: 1989
  20. PEPCID AC OTC [Concomitant]
  21. NEXIUM [Suspect]
     Active Substance: ESOMEPRAZOLE MAGNESIUM
     Indication: GASTRIC DISORDER
     Route: 048
     Dates: start: 20040715
  22. PREVACID [Suspect]
     Active Substance: LANSOPRAZOLE
     Dosage: GENERIC LANSOPRAZOLE
     Route: 065
  23. KEFLEX [Concomitant]
     Active Substance: CEPHALEXIN
  24. SULFASALAZINE. [Concomitant]
     Active Substance: SULFASALAZINE
     Indication: CROHN^S DISEASE
     Dates: start: 201504
  25. HALOPERIDOL. [Concomitant]
     Active Substance: HALOPERIDOL
     Indication: MOOD SWINGS
     Dates: start: 201504

REACTIONS (7)
  - End stage renal disease [Unknown]
  - Azotaemia [Unknown]
  - Death [Fatal]
  - Chronic kidney disease [Unknown]
  - Rebound acid hypersecretion [Unknown]
  - Renal failure [Not Recovered/Not Resolved]
  - Nephrogenic anaemia [Unknown]

NARRATIVE: CASE EVENT DATE: 20040715
